FAERS Safety Report 10210139 (Version 1)
Quarter: 2014Q2

REPORT INFORMATION
  Report Type: Spontaneous
  Country: US (occurrence: None)
  Receive Date: 20140528
  Receipt Date: 20140528
  Transmission Date: 20141212
  Serious: Yes (Hospitalization, Other)
  Sender: FDA-Public Use
  Company Number: AUR-APL-2014-06052

PATIENT
  Age: 49 Year
  Sex: Male

DRUGS (2)
  1. METFORMIN [Suspect]
     Indication: DIABETES MELLITUS
  2. HALOPERIDOL (HALOPERIDOL) (HALOPERIDOL) [Concomitant]

REACTIONS (13)
  - Overdose [None]
  - Unresponsive to stimuli [None]
  - Lethargy [None]
  - Speech disorder [None]
  - Haemodynamic instability [None]
  - Anuria [None]
  - Blood sodium decreased [None]
  - Haemodialysis [None]
  - Hypothermia [None]
  - Lactic acidosis [None]
  - Stress [None]
  - Toxicity to various agents [None]
  - Renal failure acute [None]
